FAERS Safety Report 5677829-5 (Version None)
Quarter: 2008Q1

REPORT INFORMATION
  Report Type: 
  Country: None (occurrence: None)
  Receive Date: 20080318
  Receipt Date: 20080310
  Transmission Date: 20080703
  Serious: Yes (Other)
  Sender: FDA-Public Use
  Company Number: 2007RL000519

PATIENT
  Age: 57 Year
  Sex: Female
  Weight: 78.0187 kg

DRUGS (15)
  1. LOVAZA [Suspect]
     Indication: HYPERLIPIDAEMIA
     Dosage: 2 GM;BID
  2. AMICAR [Suspect]
     Indication: DRUG USE FOR UNKNOWN INDICATION
     Dosage: 2 GM;BID;PO
     Route: 048
     Dates: start: 20070301, end: 20070924
  3. LEVOTHYROXINE SODIUM [Concomitant]
  4. GEMFIBROZIL [Concomitant]
  5. ESTROGEN NOS [Concomitant]
  6. METFORMIN HCL [Concomitant]
  7. CINNAMIN [Concomitant]
  8. ASPIRIN [Concomitant]
  9. PROENZYME Q10 [Concomitant]
  10. POTASSIUM CHLORIDE [Concomitant]
  11. GARLIC [Concomitant]
  12. CLARITIN [Concomitant]
  13. MULTI-VITAMIN [Concomitant]
  14. REQUIP [Concomitant]
  15. ZETIA [Concomitant]

REACTIONS (10)
  - ARTHRALGIA [None]
  - DRUG DISPENSING ERROR [None]
  - GROIN PAIN [None]
  - HEADACHE [None]
  - INTRACRANIAL ANEURYSM [None]
  - MEDICATION ERROR [None]
  - MIGRAINE [None]
  - NAUSEA [None]
  - NIGHT SWEATS [None]
  - PAIN IN EXTREMITY [None]
